FAERS Safety Report 22062302 (Version 1)
Quarter: 2023Q1

REPORT INFORMATION
  Report Type: Spontaneous
  Country: CN (occurrence: None)
  Receive Date: 20230305
  Receipt Date: 20230305
  Transmission Date: 20230417
  Serious: Yes (Hospitalization)
  Sender: FDA-Public Use
  Company Number: CN-ROCHE-3298594

PATIENT
  Age: 57 Year
  Sex: Female
  Weight: 60 kg

DRUGS (6)
  1. PERJETA [Suspect]
     Active Substance: PERTUZUMAB
     Indication: Breast cancer
     Dosage: HP REGIMEN, FIRST DOSE
     Route: 041
     Dates: start: 20221207
  2. PERJETA [Suspect]
     Active Substance: PERTUZUMAB
     Dosage: 30/JAN/2023, 24/FEB/2023, HP REGIMEN, D1
     Route: 041
     Dates: start: 20230103
  3. HERCEPTIN [Suspect]
     Active Substance: TRASTUZUMAB
     Indication: Breast cancer
     Dosage: 14/NOV/2022, MONOTHERAPY
     Route: 041
     Dates: start: 20221021
  4. HERCEPTIN [Suspect]
     Active Substance: TRASTUZUMAB
     Dosage: 03/JAN/2023, 30/JAN/2023, 24/FEB/2023, HP REGIMEN, D1
     Route: 041
     Dates: start: 20221207
  5. SODIUM CHLORIDE [Concomitant]
     Active Substance: SODIUM CHLORIDE
     Route: 041
     Dates: start: 20221021
  6. SODIUM CHLORIDE [Concomitant]
     Active Substance: SODIUM CHLORIDE
     Route: 041
     Dates: start: 20221207

REACTIONS (1)
  - Pneumonia [Unknown]

NARRATIVE: CASE EVENT DATE: 20221227
